FAERS Safety Report 7557666-7 (Version None)
Quarter: 2011Q2

REPORT INFORMATION
  Report Type: 
  Country: None (occurrence: None)
  Receive Date: 20110620
  Receipt Date: 20110610
  Transmission Date: 20111010
  Serious: Yes (Other)
  Sender: FDA-Public Use
  Company Number: FR-ASTRAZENECA-2011SE36278

PATIENT
  Age: 50 Year
  Sex: Male

DRUGS (1)
  1. CRESTOR [Suspect]
     Indication: HYPERCHOLESTEROLAEMIA
     Route: 048
     Dates: start: 20110601, end: 20110601

REACTIONS (13)
  - ULCERATIVE KERATITIS [None]
  - PYREXIA [None]
  - URTICARIA [None]
  - HAEMATURIA [None]
  - FATIGUE [None]
  - MYALGIA [None]
  - BLOOD CREATINE PHOSPHOKINASE INCREASED [None]
  - ARTHRALGIA [None]
  - DIZZINESS [None]
  - HEADACHE [None]
  - TRANSAMINASES INCREASED [None]
  - PRURITUS [None]
  - CONSTIPATION [None]
